FAERS Safety Report 6875678-3 (Version None)
Quarter: 2010Q3

REPORT INFORMATION
  Report Type: 
  Country: None (occurrence: None)
  Receive Date: 20100727
  Receipt Date: 20071004
  Transmission Date: 20110219
  Serious: Yes (Hospitalization, Other)
  Sender: FDA-Public Use
  Company Number: US-PFIZER INC-2006147034

PATIENT
  Sex: Male
  Weight: 96.2 kg

DRUGS (2)
  1. CELEBREX [Suspect]
     Indication: BACK PAIN
     Route: 048
     Dates: start: 20010105
  2. VIOXX [Suspect]
     Indication: BACK PAIN
     Dosage: ONCE OR TWICE DAILY
     Route: 048
     Dates: start: 20010829, end: 20040403

REACTIONS (1)
  - MYOCARDIAL INFARCTION [None]
